FAERS Safety Report 11713543 (Version 3)
Quarter: 2016Q2

REPORT INFORMATION
  Report Type: Spontaneous
  Country: US (occurrence: US)
  Receive Date: 20151109
  Receipt Date: 20160408
  Transmission Date: 20160815
  Serious: No
  Sender: FDA-Public Use
  Company Number: US-009507513-1511USA000477

PATIENT
  Sex: Female
  Weight: 118.82 kg

DRUGS (1)
  1. NEXPLANON [Suspect]
     Active Substance: ETONOGESTREL
     Indication: CONTRACEPTION
     Dosage: ONE INSERT/ONCE PER THREE YEARS
     Route: 059
     Dates: start: 20150605, end: 20150916

REACTIONS (3)
  - Drug hypersensitivity [Unknown]
  - Urticaria [Recovered/Resolved]
  - Angioedema [Recovered/Resolved]

NARRATIVE: CASE EVENT DATE: 2015
